FAERS Safety Report 18786896 (Version 2)
Quarter: 2021Q1

REPORT INFORMATION
  Report Type: Spontaneous
  Country: KR (occurrence: KR)
  Receive Date: 20210126
  Receipt Date: 20210208
  Transmission Date: 20210419
  Serious: Yes (Death, Life-Threatening, Other)
  Sender: FDA-Public Use
  Company Number: KR-AMGEN-KORSP2021010093

PATIENT

DRUGS (5)
  1. KYPROLIS [Suspect]
     Active Substance: CARFILZOMIB
     Indication: PLASMA CELL MYELOMA
     Dosage: 20 MILLIGRAM/SQ. METER, ON DAYS 1 AND 2 OF CYCLE 1
     Route: 042
  2. KYPROLIS [Suspect]
     Active Substance: CARFILZOMIB
     Dosage: 27 MILLIGRAM/SQ. METER, ON DAYS 1, 2, 8, 9, 15, AND 16 UNTIL CYCLE 12
     Route: 042
  3. KYPROLIS [Suspect]
     Active Substance: CARFILZOMIB
     Dosage: 27 MILLIGRAM/SQ. METER, 1, 2, 15, AND 16 DURING CYCLES 13 TO 18
     Route: 042
  4. REVLIMID [Concomitant]
     Active Substance: LENALIDOMIDE
     Indication: PLASMA CELL MYELOMA
     Dosage: 25 MILLIGRAM, ON DAYS 1 TO 21
     Route: 065
  5. DEXAMETHASONE. [Concomitant]
     Active Substance: DEXAMETHASONE
     Indication: PLASMA CELL MYELOMA
     Dosage: UNK

REACTIONS (28)
  - Cardiac failure [Unknown]
  - Therapy partial responder [Unknown]
  - Diarrhoea [Unknown]
  - Arrhythmia [Unknown]
  - Respiratory tract infection [Unknown]
  - Thrombocytopenia [Unknown]
  - Acute kidney injury [Unknown]
  - Hypertension [Unknown]
  - Muscle spasms [Unknown]
  - Cough [Unknown]
  - Liver function test abnormal [Unknown]
  - Dyspnoea [Unknown]
  - Pneumocystis jirovecii pneumonia [Unknown]
  - Myocardial ischaemia [Unknown]
  - Plasma cell myeloma [Unknown]
  - Septic shock [Fatal]
  - Anaemia [Unknown]
  - Hypokalaemia [Unknown]
  - Rash [Unknown]
  - Febrile neutropenia [Unknown]
  - Pyrexia [Unknown]
  - Cerebral haemorrhage [Fatal]
  - Infection [Unknown]
  - Neutropenia [Unknown]
  - Fatigue [Unknown]
  - Bronchopulmonary aspergillosis [Unknown]
  - Deep vein thrombosis [Unknown]
  - Neuropathy peripheral [Unknown]
